FAERS Safety Report 9832756 (Version 1)
Quarter: 2014Q1

REPORT INFORMATION
  Report Type: Spontaneous
  Country: US (occurrence: US)
  Receive Date: 20140121
  Receipt Date: 20140121
  Transmission Date: 20141002
  Serious: Yes (Hospitalization)
  Sender: FDA-Public Use
  Company Number: US-GLAXOSMITHKLINE-A1050473A

PATIENT
  Age: 73 Year
  Sex: Female
  Weight: 44.1 kg

DRUGS (13)
  1. VOTRIENT [Suspect]
     Indication: LEIOMYOSARCOMA
     Dosage: 400MG SEE DOSAGE TEXT
     Route: 048
     Dates: start: 201310
  2. PRAVASTATIN [Concomitant]
     Dosage: 40MG UNKNOWN
     Route: 065
  3. FOSAMAX [Concomitant]
     Route: 065
  4. BECONASE [Concomitant]
     Route: 045
  5. VITAMIN C [Concomitant]
     Route: 065
  6. CALCIUM [Concomitant]
     Dosage: 500MG UNKNOWN
     Route: 065
  7. MULTIVITAMIN [Concomitant]
     Route: 065
  8. LEVOTHYROXIN [Concomitant]
     Dosage: 150MCG UNKNOWN
     Route: 065
  9. LOSARTAN POTASSIUM [Concomitant]
     Dosage: 100MG UNKNOWN
     Route: 065
  10. ROBITUSSIN COUGH [Concomitant]
     Route: 065
  11. PROAIR HFA [Concomitant]
     Route: 055
  12. ONDANSETRON [Concomitant]
     Dosage: 4MG UNKNOWN
     Route: 065
  13. CLARITIN [Concomitant]
     Dosage: 10MG UNKNOWN
     Route: 065

REACTIONS (7)
  - Herpes zoster [Unknown]
  - Yellow skin [Unknown]
  - Rash pruritic [Unknown]
  - Insomnia [Unknown]
  - Diarrhoea [Unknown]
  - Decreased appetite [Unknown]
  - Fatigue [Unknown]
